FAERS Safety Report 16842852 (Version 2)
Quarter: 2019Q4

REPORT INFORMATION
  Report Type: Spontaneous
  Country: JP (occurrence: JP)
  Receive Date: 20190924
  Receipt Date: 20191003
  Transmission Date: 20200122
  Serious: Yes (Other)
  Sender: FDA-Public Use
  Company Number: JP-TEVA-2019-JP-1112316

PATIENT
  Age: 80 Year
  Sex: Female

DRUGS (15)
  1. CLOPIDOGREL [Suspect]
     Active Substance: CLOPIDOGREL BISULFATE
     Indication: ANTIPLATELET THERAPY
     Route: 065
  2. TAMSULOSIN [Concomitant]
     Active Substance: TAMSULOSIN
     Route: 065
  3. LACTULOSE. [Concomitant]
     Active Substance: LACTULOSE
     Route: 065
  4. L-VALINE [Concomitant]
     Route: 065
  5. L-LEUCINE [Concomitant]
     Route: 065
  6. BENIDIPINE [Concomitant]
     Active Substance: BENIDIPINE
     Route: 065
  7. TENELIGLIPTIN [Concomitant]
     Active Substance: TENELIGLIPTIN
     Route: 065
  8. POLAPREZINC [Concomitant]
     Active Substance: POLAPREZINC
     Route: 065
  9. L-ISOLEUCINE [Concomitant]
     Route: 065
  10. OLMESARTAN [Concomitant]
     Active Substance: OLMESARTAN
     Route: 065
  11. INSULIN GLARGINE [Concomitant]
     Active Substance: INSULIN GLARGINE
     Indication: DIABETES MELLITUS
     Route: 065
  12. LANSOPRAZOLE. [Concomitant]
     Active Substance: LANSOPRAZOLE
     Route: 065
  13. MAGNESIUM OXIDE. [Concomitant]
     Active Substance: MAGNESIUM OXIDE
     Route: 065
  14. CILOSTAZOL. [Suspect]
     Active Substance: CILOSTAZOL
     Indication: ANTIPLATELET THERAPY
     Route: 065
  15. INSULIN LISPRO [Concomitant]
     Active Substance: INSULIN LISPRO
     Indication: DIABETES MELLITUS
     Route: 065

REACTIONS (1)
  - Acquired haemophilia [Recovering/Resolving]
